FAERS Safety Report 15016483 (Version 1)
Quarter: 2018Q2

REPORT INFORMATION
  Report Type: Spontaneous
  Country: ZA (occurrence: ZA)
  Receive Date: 20180615
  Receipt Date: 20180615
  Transmission Date: 20180711
  Serious: Yes (Death, Hospitalization)
  Sender: FDA-Public Use
  Company Number: ZA-PFIZER INC-2018244708

PATIENT
  Age: 83 Year
  Sex: Male

DRUGS (8)
  1. PURGOXIN [Suspect]
     Active Substance: DIGOXIN
     Dosage: 0.25 MG, UNK
  2. UNAT /01036501/ [Suspect]
     Active Substance: TORSEMIDE
     Dosage: 10 MG, UNK
  3. SERDEP (SERTRALINE HYDROCHLORIDE) [Suspect]
     Active Substance: SERTRALINE HYDROCHLORIDE
     Dosage: 50 MG, UNK
  4. COLCHICINE. [Suspect]
     Active Substance: COLCHICINE
     Dosage: 0.5 MG, UNK
  5. XARELTO [Suspect]
     Active Substance: RIVAROXABAN
     Dosage: 10 MG, UNK
  6. ENAP /00574902/ [Suspect]
     Active Substance: ENALAPRIL MALEATE
     Dosage: 10 MG, UNK
  7. CELEBREX [Suspect]
     Active Substance: CELECOXIB
     Indication: ARTHRITIS
     Dosage: 200 MG, UNK
  8. ADCO-BISOCOR [Suspect]
     Active Substance: BISOPROLOL FUMARATE
     Dosage: 5 MG, UNK

REACTIONS (1)
  - Coronary artery thrombosis [Fatal]
